FAERS Safety Report 12605673 (Version 1)
Quarter: 2016Q3

REPORT INFORMATION
  Report Type: Spontaneous
  Country: US (occurrence: None)
  Receive Date: 20160728
  Receipt Date: 20160728
  Transmission Date: 20161109
  Serious: Yes (Death)
  Sender: FDA-Public Use
  Company Number: None

PATIENT
  Age: 52 Year
  Sex: Male

DRUGS (2)
  1. CYCLOPHOSPHOMIDE [Suspect]
     Active Substance: CYCLOPHOSPHAMIDE
     Indication: NON-HODGKIN^S LYMPHOMA
     Dosage: EVERY 21 DAYS
     Route: 042
     Dates: start: 20160322, end: 20160613
  2. VINCRISTINE 2MG/2ML HOSPIRA [Suspect]
     Active Substance: VINCRISTINE
     Dosage: EVERY 21 DAYS
     Route: 042
     Dates: start: 20160322, end: 20160613

REACTIONS (1)
  - Death [None]

NARRATIVE: CASE EVENT DATE: 20160727
